FAERS Safety Report 5138061-7 (Version None)
Quarter: 2006Q4

REPORT INFORMATION
  Report Type: 
  Country: None (occurrence: None)
  Receive Date: 20061030
  Receipt Date: 20060410
  Transmission Date: 20070319
  Serious: No
  Sender: FDA-Public Use
  Company Number: US-GLAXOSMITHKLINE-A0601191A

PATIENT
  Age: 50 Year
  Sex: Female

DRUGS (9)
  1. ADVAIR HFA [Suspect]
     Indication: CHRONIC OBSTRUCTIVE PULMONARY DISEASE
     Dosage: 1BLS TWICE PER DAY
     Route: 055
     Dates: start: 20051201
  2. GLUCOPHAGE [Concomitant]
  3. DYAZIDE [Concomitant]
  4. DIOVAN [Concomitant]
  5. LEVOXYL [Concomitant]
  6. TOPROL-XL [Concomitant]
  7. ALLEGRA [Concomitant]
  8. ESTROGENS SOL/INJ [Concomitant]
  9. PROZAC [Concomitant]

REACTIONS (4)
  - DYSPNOEA EXERTIONAL [None]
  - FATIGUE [None]
  - HEADACHE [None]
  - PHARMACEUTICAL PRODUCT COMPLAINT [None]
